FAERS Safety Report 22138936 (Version 1)
Quarter: 2023Q1

REPORT INFORMATION
  Report Type: Spontaneous
  Country: JP (occurrence: JP)
  Receive Date: 20230327
  Receipt Date: 20230327
  Transmission Date: 20230417
  Serious: Yes (Hospitalization)
  Sender: FDA-Public Use
  Company Number: JP-TAKEDA-2023TJP000827AA

PATIENT
  Age: 8 Decade
  Sex: Female

DRUGS (4)
  1. TEDUGLUTIDE [Suspect]
     Active Substance: TEDUGLUTIDE
     Indication: Short-bowel syndrome
     Dosage: 0.15 MILLILITER
     Route: 058
     Dates: start: 20230110
  2. TEDUGLUTIDE [Suspect]
     Active Substance: TEDUGLUTIDE
     Indication: Short-bowel syndrome
     Dosage: 0.15 MILLILITER
     Route: 058
     Dates: start: 20230110
  3. TEDUGLUTIDE [Suspect]
     Active Substance: TEDUGLUTIDE
     Indication: Short-bowel syndrome
     Dosage: 0.15 MILLILITER
     Route: 058
     Dates: start: 20230110
  4. TEDUGLUTIDE [Suspect]
     Active Substance: TEDUGLUTIDE
     Indication: Short-bowel syndrome
     Dosage: 0.15 MILLILITER
     Route: 058
     Dates: start: 20230110

REACTIONS (2)
  - Weight increased [Not Recovered/Not Resolved]
  - Oedema [Not Recovered/Not Resolved]

NARRATIVE: CASE EVENT DATE: 20230120
